FAERS Safety Report 5722010-4 (Version None)
Quarter: 2008Q2

REPORT INFORMATION
  Report Type: 
  Country: None (occurrence: None)
  Receive Date: 20080429
  Receipt Date: 20080417
  Transmission Date: 20081010
  Serious: Yes (Hospitalization, Other)
  Sender: FDA-Public Use
  Company Number: JP-PFIZER INC-2008030040

PATIENT
  Sex: Female

DRUGS (7)
  1. UNASYN [Suspect]
     Indication: PNEUMONIA
     Dosage: DAILY DOSE:6GRAM
     Route: 042
     Dates: start: 20080319, end: 20080322
  2. ZITHROMAX [Suspect]
     Indication: PNEUMONIA
     Route: 048
     Dates: start: 20080319, end: 20080322
  3. BISOLVON [Concomitant]
     Route: 048
  4. ONON [Concomitant]
     Route: 048
  5. MEDICON [Concomitant]
     Route: 048
  6. SPIRIVA [Concomitant]
     Route: 048
     Dates: start: 20070912, end: 20080319
  7. MUCODYNE [Concomitant]
     Route: 048
     Dates: start: 20080319, end: 20080319

REACTIONS (5)
  - DRUG ERUPTION [None]
  - NEISSERIA INFECTION [None]
  - SPUTUM CULTURE POSITIVE [None]
  - STREPTOCOCCAL INFECTION [None]
  - TOXIC EPIDERMAL NECROLYSIS [None]
